FAERS Safety Report 25085368 (Version 1)
Quarter: 2025Q1

REPORT INFORMATION
  Report Type: Spontaneous
  Country: US (occurrence: US)
  Receive Date: 20250317
  Receipt Date: 20250317
  Transmission Date: 20250408
  Serious: No
  Sender: Tilde Sciences
  Company Number: US-TILDE SCIENCES LLC-2025TIL00002

PATIENT
  Age: 52 Year
  Sex: Female
  Weight: 83.007 kg

DRUGS (6)
  1. DARAPRIM [Suspect]
     Active Substance: PYRIMETHAMINE
     Indication: Toxoplasmosis
     Dosage: 75 MG (3 TABLETS), 1X/DAY WITH BREAKFAST
     Route: 048
  2. QUETIAPINE [Concomitant]
     Active Substance: QUETIAPINE
  3. LEVOTHYROXINE [Concomitant]
     Active Substance: LEVOTHYROXINE
  4. BIKTARVY [Concomitant]
     Active Substance: BICTEGRAVIR SODIUM\EMTRICITABINE\TENOFOVIR ALAFENAMIDE FUMARATE
  5. CLINDAMYCIN [Concomitant]
     Active Substance: CLINDAMYCIN
  6. LEUCOVORIN [Concomitant]
     Active Substance: LEUCOVORIN\LEUCOVORIN CALCIUM

REACTIONS (4)
  - Hyperaesthesia [Not Recovered/Not Resolved]
  - Head injury [Not Recovered/Not Resolved]
  - Memory impairment [Not Recovered/Not Resolved]
  - Off label use [Unknown]

NARRATIVE: CASE EVENT DATE: 20241201
